FAERS Safety Report 9473265 (Version 1)
Quarter: 2013Q3

REPORT INFORMATION
  Report Type: Spontaneous
  Country: US (occurrence: US)
  Receive Date: 20130823
  Receipt Date: 20130823
  Transmission Date: 20140515
  Serious: Yes (Other)
  Sender: FDA-Public Use
  Company Number: US-BRISTOL-MYERS SQUIBB COMPANY-18818658

PATIENT
  Age: 46 Year
  Sex: Female

DRUGS (1)
  1. SPRYCEL (CML) TABS 100 MG [Suspect]

REACTIONS (5)
  - Pneumonia [Unknown]
  - Myalgia [Unknown]
  - Bone pain [Unknown]
  - Asthenia [Unknown]
  - Nausea [Unknown]
